FAERS Safety Report 18935061 (Version 2)
Quarter: 2021Q2

REPORT INFORMATION
  Report Type: Spontaneous
  Country: BR (occurrence: BR)
  Receive Date: 20210224
  Receipt Date: 20210409
  Transmission Date: 20210717
  Serious: Yes (Other)
  Sender: FDA-Public Use
  Company Number: BR-ROCHE-2776646

PATIENT
  Age: 48 Year
  Sex: Male

DRUGS (3)
  1. ACTEMRA [Suspect]
     Active Substance: TOCILIZUMAB
     Indication: COVID-19
     Dosage: UNIQUE DOSE
     Route: 042
     Dates: start: 20210219, end: 20210219
  2. NOREPINEPHRINE. [Concomitant]
     Active Substance: NOREPINEPHRINE
  3. AMIODARONE [Concomitant]
     Active Substance: AMIODARONE

REACTIONS (2)
  - Bradycardia [Recovered/Resolved]
  - Off label use [Unknown]
